FAERS Safety Report 20524254 (Version 1)
Quarter: 2022Q1

REPORT INFORMATION
  Report Type: Spontaneous
  Country: US (occurrence: None)
  Receive Date: 20220228
  Receipt Date: 20220228
  Transmission Date: 20220423
  Serious: Yes (Other)
  Sender: FDA-Public Use
  Company Number: US-ROCHE-3026869

PATIENT
  Sex: Male

DRUGS (4)
  1. OCREVUS [Suspect]
     Active Substance: OCRELIZUMAB
     Indication: Relapsing-remitting multiple sclerosis
     Route: 065
     Dates: start: 201912, end: 202111
  2. KESIMPTA [Concomitant]
     Active Substance: OFATUMUMAB
  3. GABAPENTIN [Concomitant]
     Active Substance: GABAPENTIN
  4. VIAGRA [Concomitant]
     Active Substance: SILDENAFIL CITRATE

REACTIONS (4)
  - Back pain [Unknown]
  - Pain [Unknown]
  - Fatigue [Unknown]
  - Asthenia [Unknown]
